FAERS Safety Report 6087248-8 (Version None)
Quarter: 2009Q1

REPORT INFORMATION
  Report Type: 
  Country: None (occurrence: None)
  Receive Date: 20090219
  Receipt Date: 20081014
  Transmission Date: 20090719
  Serious: No
  Sender: FDA-Public Use
  Company Number: WAES 0810USA00208

PATIENT
  Age: 54 Year
  Sex: Male
  Weight: 68.9467 kg

DRUGS (2)
  1. ISENTRESS [Suspect]
     Indication: HIV INFECTION
     Dosage: BID/PO
     Route: 048
     Dates: start: 20080721, end: 20080901
  2. COMBIVIR [Concomitant]

REACTIONS (1)
  - RENAL FAILURE [None]
